FAERS Safety Report 18171020 (Version 1)
Quarter: 2020Q3

REPORT INFORMATION
  Report Type: Spontaneous
  Country: US (occurrence: US)
  Receive Date: 20200819
  Receipt Date: 20200819
  Transmission Date: 20201103
  Serious: Yes (Hospitalization, Other)
  Sender: FDA-Public Use
  Company Number: US-ALVOGEN-2020-ALVOGEN-113859

PATIENT
  Age: 69 Year
  Sex: Female

DRUGS (9)
  1. BUMEX [Suspect]
     Active Substance: BUMETANIDE
     Indication: DIURETIC THERAPY
     Route: 048
     Dates: start: 202006
  2. ATENOLOL. [Suspect]
     Active Substance: ATENOLOL
     Indication: HYPERTENSION
     Route: 048
  3. SILDENAFIL. [Suspect]
     Active Substance: SILDENAFIL
     Indication: PULMONARY ARTERIAL HYPERTENSION
     Route: 048
     Dates: start: 202006
  4. BUMEX [Suspect]
     Active Substance: BUMETANIDE
     Indication: PULMONARY HYPERTENSION
     Route: 048
     Dates: start: 202006
  5. OFEV [Suspect]
     Active Substance: NINTEDANIB
     Indication: PULMONARY FIBROSIS
     Route: 048
     Dates: start: 202006
  6. SPIRONOLACTONE. [Suspect]
     Active Substance: SPIRONOLACTONE
     Indication: HYPERTENSION
     Dates: start: 202006
  7. PEPCID [Concomitant]
     Active Substance: FAMOTIDINE
     Indication: PRODUCT USED FOR UNKNOWN INDICATION
  8. PROTONIX [Concomitant]
     Active Substance: PANTOPRAZOLE SODIUM
     Indication: PRODUCT USED FOR UNKNOWN INDICATION
  9. BUMEX [Suspect]
     Active Substance: BUMETANIDE
     Indication: PULMONARY FIBROSIS
     Route: 048
     Dates: start: 202006

REACTIONS (2)
  - Unevaluable event [Not Recovered/Not Resolved]
  - Feeling abnormal [Not Recovered/Not Resolved]

NARRATIVE: CASE EVENT DATE: 202006
